FAERS Safety Report 24620286 (Version 1)
Quarter: 2024Q4

REPORT INFORMATION
  Report Type: Spontaneous
  Country: CN (occurrence: CN)
  Receive Date: 20241114
  Receipt Date: 20241114
  Transmission Date: 20250115
  Serious: Yes (Other)
  Sender: NOVARTIS
  Company Number: CN-002147023-NVSC2024CN219289

PATIENT
  Age: 85 Year
  Sex: Female

DRUGS (3)
  1. SACUBITRIL\VALSARTAN [Suspect]
     Active Substance: SACUBITRIL\VALSARTAN
     Indication: Cardiac dysfunction
     Dosage: 25 MG, QD
     Route: 048
     Dates: start: 20241017, end: 20241022
  2. METOPROLOL SUCCINATE [Suspect]
     Active Substance: METOPROLOL SUCCINATE
     Indication: Cardiac dysfunction
     Dosage: 23.75 MG, QD (SUSTAINED-RELEASE TABLETS)
     Route: 048
     Dates: start: 20241017, end: 20241022
  3. DAPAGLIFLOZIN [Suspect]
     Active Substance: DAPAGLIFLOZIN
     Indication: Renal disorder
     Dosage: 5 MG, QD
     Route: 048
     Dates: start: 20241017, end: 20241022

REACTIONS (1)
  - Hypotension [Recovering/Resolving]

NARRATIVE: CASE EVENT DATE: 20241022
